FAERS Safety Report 8567892 (Version 2)
Quarter: 2013Q3

REPORT INFORMATION
  Report Type: Spontaneous
  Country: US (occurrence: US)
  Receive Date: 20120518
  Receipt Date: 20130710
  Transmission Date: 20140515
  Serious: No
  Sender: FDA-Public Use
  Company Number: US-BIOGENIDEC-2012BI016653

PATIENT
  Sex: Female

DRUGS (5)
  1. TYSABRI [Suspect]
     Indication: MULTIPLE SCLEROSIS
     Route: 042
     Dates: start: 20111110
  2. FLUOXETINE [Concomitant]
     Indication: FATIGUE
  3. CYMBALTA [Concomitant]
     Indication: PAIN
     Dates: start: 201103
  4. VITAMIN D [Concomitant]
     Indication: PRODUCT USED FOR UNKNOWN INDICATION
     Dates: start: 2011
  5. VITAMIN B 12 [Concomitant]
     Indication: PRODUCT USED FOR UNKNOWN INDICATION

REACTIONS (9)
  - Memory impairment [Not Recovered/Not Resolved]
  - Feeling cold [Recovered/Resolved]
  - Agitation [Recovered/Resolved]
  - Insomnia [Recovered/Resolved]
  - Pain in extremity [Not Recovered/Not Resolved]
  - Chromaturia [Not Recovered/Not Resolved]
  - Fungal infection [Recovered/Resolved with Sequelae]
  - Amnesia [Not Recovered/Not Resolved]
  - Sluggishness [Not Recovered/Not Resolved]
